FAERS Safety Report 8537254-6 (Version None)
Quarter: 2012Q3

REPORT INFORMATION
  Report Type: 
  Country: None (occurrence: None)
  Receive Date: 20120725
  Receipt Date: 20120718
  Transmission Date: 20120928
  Serious: No
  Sender: FDA-Public Use
  Company Number: US-PFIZER INC-2012007188

PATIENT
  Sex: Female
  Weight: 63.492 kg

DRUGS (5)
  1. CHANTIX [Suspect]
     Indication: SMOKING CESSATION THERAPY
     Dosage: UNK
     Route: 048
  2. DIAZEPAM [Concomitant]
     Dosage: 5 MG, 2X/DAY
  3. TIAZAC [Concomitant]
     Indication: CARDIAC DISORDER
     Dosage: 250 MG, DAILY
  4. AMITRIPTYLINE [Concomitant]
     Dosage: 2 MG, 2X/DAY
  5. CHANTIX [Suspect]
     Dosage: UNK
     Route: 048
     Dates: start: 20120101, end: 20120101

REACTIONS (3)
  - RENAL DISORDER [None]
  - BLADDER DISORDER [None]
  - NOCTURIA [None]
